FAERS Safety Report 13659682 (Version 1)
Quarter: 2017Q2

REPORT INFORMATION
  Report Type: Spontaneous
  Country: US (occurrence: US)
  Receive Date: 20170616
  Receipt Date: 20170616
  Transmission Date: 20170830
  Serious: No
  Sender: FDA-Public Use
  Company Number: US-GLAXOSMITHKLINE-US2017091566

PATIENT
  Age: 56 Year
  Sex: Female

DRUGS (2)
  1. PROAIR HFA [Concomitant]
     Active Substance: ALBUTEROL SULFATE
  2. ADVAIR DISKUS [Suspect]
     Active Substance: FLUTICASONE PROPIONATE\SALMETEROL XINAFOATE
     Indication: ASTHMA
     Dosage: 1 PUFF(S), QD
     Route: 055
     Dates: start: 201705

REACTIONS (7)
  - Hypopnoea [Unknown]
  - Underdose [Unknown]
  - Epistaxis [Unknown]
  - Chest discomfort [Unknown]
  - Chest pain [Unknown]
  - Lung disorder [Unknown]
  - Feeling jittery [Unknown]

NARRATIVE: CASE EVENT DATE: 201705
